FAERS Safety Report 13096129 (Version 1)
Quarter: 2017Q1

REPORT INFORMATION
  Report Type: Report from Study
  Country: NL (occurrence: NL)
  Receive Date: 20170109
  Receipt Date: 20170109
  Transmission Date: 20170428
  Serious: Yes (Death)
  Sender: FDA-Public Use
  Company Number: NL-VIFOR (INTERNATIONAL) INC.-VIT-2016-09166

PATIENT
  Age: 84 Year
  Sex: Male

DRUGS (4)
  1. NEORECORMON [Suspect]
     Active Substance: ERYTHROPOIETIN
     Indication: NEPHROGENIC ANAEMIA
     Route: 058
     Dates: start: 20120719, end: 20130523
  2. MIRCERA [Suspect]
     Active Substance: METHOXY POLYETHYLENE GLYCOL-EPOETIN BETA
     Route: 058
     Dates: start: 20140612
  3. MIRCERA [Suspect]
     Active Substance: METHOXY POLYETHYLENE GLYCOL-EPOETIN BETA
     Indication: NEPHROGENIC ANAEMIA
     Route: 058
     Dates: start: 20090921, end: 20130117
  4. NEORECORMON [Suspect]
     Active Substance: ERYTHROPOIETIN
     Route: 058
     Dates: start: 20130709

REACTIONS (1)
  - Death [Fatal]

NARRATIVE: CASE EVENT DATE: 20160915
